FAERS Safety Report 17669171 (Version 2)
Quarter: 2021Q3

REPORT INFORMATION
  Report Type: Other
  Country: RO (occurrence: RO)
  Receive Date: 20200415
  Receipt Date: 20210908
  Transmission Date: 20211014
  Serious: Yes (Other)
  Sender: FDA-Public Use
  Company Number: RO-ROCHE-2580905

PATIENT
  Sex: Female
  Weight: 90 kg

DRUGS (1)
  1. ROACTEMRA [Suspect]
     Active Substance: TOCILIZUMAB
     Indication: RHEUMATOID ARTHRITIS
     Dosage: NO
     Route: 042
     Dates: start: 201802, end: 202003

REACTIONS (5)
  - Ligament rupture [Unknown]
  - Drug ineffective [Unknown]
  - Malaise [Unknown]
  - Product dose omission issue [Unknown]
  - Ill-defined disorder [Unknown]
